FAERS Safety Report 6309156-7 (Version None)
Quarter: 2009Q3

REPORT INFORMATION
  Report Type: 
  Country: None (occurrence: None)
  Receive Date: 20090814
  Receipt Date: 20090511
  Transmission Date: 20100115
  Serious: No
  Sender: FDA-Public Use
  Company Number: A0783531A

PATIENT
  Age: 81 Year
  Sex: Male

DRUGS (3)
  1. COREG CR [Suspect]
     Indication: HYPERTENSION
     Dosage: 40MG PER DAY
     Route: 048
     Dates: start: 20090101
  2. AVALIDE [Concomitant]
  3. APRACLONIDINE HYDROCHLORIDE [Concomitant]

REACTIONS (2)
  - DRY EYE [None]
  - VISUAL IMPAIRMENT [None]
